FAERS Safety Report 5264077-6 (Version None)
Quarter: 2007Q1

REPORT INFORMATION
  Report Type: 
  Country: None (occurrence: None)
  Receive Date: 20070313
  Receipt Date: 20070302
  Transmission Date: 20070707
  Serious: Yes (Hospitalization)
  Sender: FDA-Public Use
  Company Number: JP-PFIZER INC-2006111516

PATIENT
  Sex: Female
  Weight: 52 kg

DRUGS (7)
  1. AZULFIDINE EN-TABS [Suspect]
     Indication: MUSCULOSKELETAL PAIN
     Route: 048
     Dates: start: 20000526, end: 20060907
  2. RIMATIL [Suspect]
     Indication: MUSCULOSKELETAL PAIN
     Route: 048
     Dates: start: 20000531, end: 20060713
  3. KAKKON-TO [Concomitant]
     Route: 048
  4. MUCOSTA [Concomitant]
     Route: 048
  5. MEDROL [Concomitant]
     Route: 048
     Dates: start: 20010529
  6. CONIEL [Concomitant]
     Route: 048
     Dates: start: 20000902
  7. CYTOTEC [Concomitant]
     Route: 048
     Dates: start: 20000722

REACTIONS (1)
  - INTERSTITIAL LUNG DISEASE [None]
